FAERS Safety Report 9278431 (Version 1)
Quarter: 2012Q4

REPORT INFORMATION
  Report Type: Spontaneous
  Country: JP (occurrence: None)
  Receive Date: 20121109
  Receipt Date: 20121109
  Transmission Date: 20130627
  Serious: Yes (Life-Threatening, Other)
  Sender: FDA-Public Use
  Company Number: 2012S1000759

PATIENT
  Age: 79 Year
  Sex: Male

DRUGS (1)
  1. CUBICIN [Suspect]
     Indication: INFECTIVE SPONDYLITIS
     Route: 042
     Dates: start: 20120819, end: 20120909

REACTIONS (6)
  - Lung disorder [None]
  - Systemic inflammatory response syndrome [None]
  - Pneumonia aspiration [None]
  - Pneumonia [None]
  - Off label use [None]
  - Acute respiratory distress syndrome [None]
